FAERS Safety Report 6489579-6 (Version None)
Quarter: 2009Q4

REPORT INFORMATION
  Report Type: 
  Country: None (occurrence: None)
  Receive Date: 20091210
  Receipt Date: 20091202
  Transmission Date: 20100525
  Serious: Yes (Other)
  Sender: FDA-Public Use
  Company Number: BR-ABBOTT-09P-020-0612175-00

PATIENT
  Sex: Female
  Weight: 58 kg

DRUGS (3)
  1. HUMIRA [Suspect]
     Indication: RHEUMATOID ARTHRITIS
     Route: 058
     Dates: start: 20070101
  2. UNKNOWN [Concomitant]
     Indication: BLOOD PRESSURE
  3. UNKNOWN [Concomitant]
     Indication: ANGIOPATHY

REACTIONS (1)
  - VENOUS OCCLUSION [None]
